FAERS Safety Report 22526773 (Version 3)
Quarter: 2023Q2

REPORT INFORMATION
  Report Type: Spontaneous
  Country: SA (occurrence: SA)
  Receive Date: 20230606
  Receipt Date: 20230619
  Transmission Date: 20230722
  Serious: Yes (Death, Other)
  Sender: FDA-Public Use
  Company Number: SA-PFIZER INC-PV202300099538

PATIENT
  Sex: Female

DRUGS (2)
  1. BESPONSA [Suspect]
     Active Substance: INOTUZUMAB OZOGAMICIN
     Indication: Salvage therapy
     Dosage: 3 DOSES FOR 1ST CYCLE
  2. BESPONSA [Suspect]
     Active Substance: INOTUZUMAB OZOGAMICIN
     Dosage: ONE DOSE FOR THE 2ND CYCLE

REACTIONS (1)
  - Death [Fatal]
